FAERS Safety Report 16659177 (Version 1)
Quarter: 2019Q3

REPORT INFORMATION
  Report Type: Spontaneous
  Country: DE (occurrence: DE)
  Receive Date: 20190802
  Receipt Date: 20190802
  Transmission Date: 20191004
  Serious: Yes (Hospitalization)
  Sender: FDA-Public Use
  Company Number: DE-SUN PHARMACEUTICAL INDUSTRIES LTD-2019RR-215983

PATIENT
  Age: 19 Year
  Sex: Female
  Weight: 72 kg

DRUGS (2)
  1. IBUPROFEN. [Suspect]
     Active Substance: IBUPROFEN
     Indication: SURGERY
     Dosage: DAILY DOSE: 3000 MG MILLGRAM(S) EVERY TOTAL 5 SEPARATED DOSES ; IN TOTAL
     Route: 048
  2. DICLOFENAC [Suspect]
     Active Substance: DICLOFENAC
     Indication: SURGERY
     Dosage: DAILY DOSE: 450 MG MILLGRAM(S) EVERY TOTAL 6 SEPARATED DOSES ; IN TOTAL
     Route: 048

REACTIONS (1)
  - Drug-induced liver injury [Unknown]

NARRATIVE: CASE EVENT DATE: 20190626
